FAERS Safety Report 18331819 (Version 1)
Quarter: 2020Q3

REPORT INFORMATION
  Report Type: Spontaneous
  Country: JP (occurrence: JP)
  Receive Date: 20200930
  Receipt Date: 20200930
  Transmission Date: 20201103
  Serious: Yes (Hospitalization, Other)
  Sender: FDA-Public Use
  Company Number: JP-JNJFOC-20200938750

PATIENT
  Sex: Female

DRUGS (6)
  1. XEPLION [Suspect]
     Active Substance: PALIPERIDONE PALMITATE
     Route: 030
     Dates: start: 2018, end: 2018
  2. INVEGA [Suspect]
     Active Substance: PALIPERIDONE
     Indication: SCHIZOPHRENIA
     Route: 048
     Dates: start: 2019
  3. INVEGA [Suspect]
     Active Substance: PALIPERIDONE
     Route: 048
  4. XEPLION [Suspect]
     Active Substance: PALIPERIDONE PALMITATE
     Indication: SCHIZOPHRENIA
     Route: 030
     Dates: start: 2018
  5. XEPLION [Suspect]
     Active Substance: PALIPERIDONE PALMITATE
  6. CLOZAPINE. [Concomitant]
     Active Substance: CLOZAPINE
     Dosage: DOSE UNKNOWN
     Route: 048
     Dates: start: 2019, end: 2019

REACTIONS (6)
  - Off label use [Unknown]
  - Injection site pain [Unknown]
  - Schizophrenia [Unknown]
  - Extrapyramidal disorder [Recovered/Resolved]
  - Hospitalisation [Unknown]
  - Inappropriate schedule of product administration [Unknown]

NARRATIVE: CASE EVENT DATE: 2018
